FAERS Safety Report 23571552 (Version 1)
Quarter: 2024Q1

REPORT INFORMATION
  Report Type: Spontaneous
  Country: CN (occurrence: CN)
  Receive Date: 20240227
  Receipt Date: 20240227
  Transmission Date: 20240410
  Serious: Yes (Hospitalization)
  Sender: FDA-Public Use
  Company Number: None

PATIENT
  Age: 69 Year
  Sex: Male
  Weight: 70 kg

DRUGS (3)
  1. IFOSFAMIDE [Suspect]
     Active Substance: IFOSFAMIDE
     Indication: Neoplasm
     Dosage: 3.4 G, ONE TIME IN ONE DAY, AS A PART OF AI REGIMEN TREATMENT  CYCLE 2
     Route: 041
     Dates: start: 20240115, end: 20240117
  2. DOXORUBICIN [Suspect]
     Active Substance: DOXORUBICIN
     Indication: Neoplasm
     Dosage: UNK, AS A PART OF AI REGIMEN TREATMENT CYCLE 2
     Route: 065
     Dates: start: 20240115
  3. SINTILIMAB [Suspect]
     Active Substance: SINTILIMAB
     Indication: Neoplasm
     Dosage: UNK, TREATMENT CYCLE 2
     Route: 065
     Dates: start: 20240115

REACTIONS (6)
  - Mental disorder [Recovering/Resolving]
  - Lethargy [Recovering/Resolving]
  - Slow response to stimuli [Recovering/Resolving]
  - Altered state of consciousness [Recovered/Resolved]
  - Chromaturia [Recovered/Resolved]
  - Urinary incontinence [Recovered/Resolved]

NARRATIVE: CASE EVENT DATE: 20240117
